FAERS Safety Report 5308437-3 (Version None)
Quarter: 2007Q2

REPORT INFORMATION
  Report Type: 
  Country: None (occurrence: None)
  Receive Date: 20070426
  Receipt Date: 20070418
  Transmission Date: 20071010
  Serious: Yes (Hospitalization)
  Sender: FDA-Public Use
  Company Number: JP-ROCHE-372464

PATIENT
  Age: 17 Year
  Sex: Male

DRUGS (2)
  1. TAMIFLU [Suspect]
     Route: 048
     Dates: start: 20040202, end: 20040202
  2. CALONAL [Concomitant]
     Dosage: DOSE FORM REPORTED AS: FINE GRANULE.
     Route: 048
     Dates: start: 20040202, end: 20040202

REACTIONS (2)
  - HALLUCINATION [None]
  - LOWER LIMB FRACTURE [None]
